FAERS Safety Report 19354832 (Version 1)
Quarter: 2021Q2

REPORT INFORMATION
  Report Type: Spontaneous
  Country: US (occurrence: US)
  Receive Date: 20210601
  Receipt Date: 20210601
  Transmission Date: 20210717
  Serious: Yes (Hospitalization)
  Sender: FDA-Public Use
  Company Number: None

PATIENT
  Age: 63 Year
  Sex: Female
  Weight: 68.7 kg

DRUGS (12)
  1. BENZTROPINE. [Concomitant]
     Active Substance: BENZTROPINE
  2. GABAPENTIN. [Concomitant]
     Active Substance: GABAPENTIN
  3. PAROXETINE. [Concomitant]
     Active Substance: PAROXETINE
  4. CYANOCOBALAMIN. [Concomitant]
     Active Substance: CYANOCOBALAMIN
  5. ATORVASTATIN [Concomitant]
     Active Substance: ATORVASTATIN
  6. MIRTAZAPINE. [Concomitant]
     Active Substance: MIRTAZAPINE
  7. OLANZAPINE. [Concomitant]
     Active Substance: OLANZAPINE
  8. DULOXETINE. [Concomitant]
     Active Substance: DULOXETINE
  9. MELOXICAM. [Concomitant]
     Active Substance: MELOXICAM
  10. ALBUTEROL. [Concomitant]
     Active Substance: ALBUTEROL
  11. DONEPEZIL. [Suspect]
     Active Substance: DONEPEZIL
     Indication: DEMENTIA
     Route: 048
     Dates: start: 20210420, end: 20210528
  12. CALCIUM?VITAMIN D [Concomitant]
     Active Substance: CALCIUM\VITAMIN D

REACTIONS (7)
  - Sepsis [None]
  - Blood creatine phosphokinase increased [None]
  - Mental status changes [None]
  - Confusional state [None]
  - Drug intolerance [None]
  - Urinary tract infection [None]
  - Fall [None]

NARRATIVE: CASE EVENT DATE: 20210528
